FAERS Safety Report 8076906-1 (Version None)
Quarter: 2011Q4

REPORT INFORMATION
  Report Type: 
  Country: None (occurrence: None)
  Receive Date: 20111221
  Receipt Date: 20110517
  Transmission Date: 20120403
  Serious: Yes (Other)
  Sender: FDA-Public Use
  Company Number: PHHY2011US43420

PATIENT
  Age: 40 Year
  Sex: Male

DRUGS (1)
  1. EXJADE [Suspect]
     Indication: SICKLE CELL ANAEMIA
     Dosage: 20 MG/KG, ORAL
     Route: 048
     Dates: start: 20080501, end: 20110503

REACTIONS (1)
  - LIVER FUNCTION TEST ABNORMAL [None]
